FAERS Safety Report 4591599-3 (Version None)
Quarter: 2005Q1

REPORT INFORMATION
  Report Type: 
  Country: None (occurrence: None)
  Receive Date: 20050225
  Receipt Date: 20050204
  Transmission Date: 20050727
  Serious: Yes (Death, Hospitalization)
  Sender: FDA-Public Use
  Company Number: US-BRISTOL-MYERS SQUIBB COMPANY-12851671

PATIENT
  Age: 67 Year
  Sex: Male
  Weight: 74 kg

DRUGS (3)
  1. CETUXIMAB [Suspect]
     Indication: NON-SMALL CELL LUNG CANCER
     Dosage: FIRST AND MOST RECENT COURSE ADMINISTERED 31-JAN-2005. TOTAL DOSE ADMINISTERED THIS COURSE 775 MG.
     Dates: start: 20050131
  2. CARBOPLATIN [Suspect]
     Indication: NON-SMALL CELL LUNG CANCER
     Dosage: FIRST COURSE INITIATED 31-JAN-2005. TOTAL DOSE ADMINISTERED THIS COURSE 0 MG.
  3. PACLITAXEL [Suspect]
     Indication: NON-SMALL CELL LUNG CANCER
     Dosage: FIRST COURSE INITIATED ON 31-JAN-2005. TOTAL DOSE ADMINISTERED THIS COURSE 0 MG.

REACTIONS (5)
  - ABDOMINAL PAIN [None]
  - PERITONEAL INFECTION [None]
  - RESPIRATORY FAILURE [None]
  - SEPTIC SHOCK [None]
  - SMALL INTESTINAL PERFORATION [None]
